FAERS Safety Report 11097360 (Version 1)
Quarter: 2015Q2

REPORT INFORMATION
  Report Type: Spontaneous
  Country: US (occurrence: None)
  Receive Date: 20150506
  Receipt Date: 20150506
  Transmission Date: 20150821
  Serious: Yes (Hospitalization)
  Sender: FDA-Public Use
  Company Number: None

PATIENT
  Age: 73 Year
  Sex: Female

DRUGS (1)
  1. CAPECITABINE 500 MG TEVA PHARMACEUTICALS USA INC [Suspect]
     Active Substance: CAPECITABINE
     Indication: BREAST CANCER
     Dosage: 14 DAYS ON, 7 DAYS OFF
     Route: 048

REACTIONS (7)
  - Candida infection [None]
  - Dehydration [None]
  - Diarrhoea [None]
  - Stomatitis [None]
  - Blood electrolytes decreased [None]
  - Influenza [None]
  - Malaise [None]

NARRATIVE: CASE EVENT DATE: 20150406
